FAERS Safety Report 17721216 (Version 1)
Quarter: 2020Q2

REPORT INFORMATION
  Report Type: Spontaneous
  Country: US (occurrence: US)
  Receive Date: 20200429
  Receipt Date: 20200429
  Transmission Date: 20200714
  Serious: No
  Sender: FDA-Public Use
  Company Number: US-ROCHE-2511974

PATIENT
  Sex: Female
  Weight: 66.74 kg

DRUGS (4)
  1. FOLIC ACID. [Concomitant]
     Active Substance: FOLIC ACID
     Indication: COLON CANCER
     Route: 065
     Dates: start: 201903
  2. OXALIPLATIN. [Concomitant]
     Active Substance: OXALIPLATIN
     Indication: COLON CANCER
     Route: 065
     Dates: start: 201903
  3. AVASTIN [Suspect]
     Active Substance: BEVACIZUMAB
     Indication: COLON CANCER
     Route: 065
  4. FLUORO URACIL [Concomitant]
     Active Substance: FLUOROURACIL
     Indication: COLON CANCER
     Route: 065
     Dates: start: 201903

REACTIONS (7)
  - Dry skin [Not Recovered/Not Resolved]
  - Sleep disorder [Not Recovered/Not Resolved]
  - Ageusia [Not Recovered/Not Resolved]
  - Diarrhoea [Recovered/Resolved]
  - Nausea [Recovered/Resolved]
  - Back pain [Not Recovered/Not Resolved]
  - Fatigue [Not Recovered/Not Resolved]
